FAERS Safety Report 23867357 (Version 2)
Quarter: 2024Q2

REPORT INFORMATION
  Report Type: Spontaneous
  Country: AT (occurrence: AT)
  Receive Date: 20240517
  Receipt Date: 20240529
  Transmission Date: 20240715
  Serious: Yes (Hospitalization, Other)
  Sender: FDA-Public Use
  Company Number: AT-ALNYLAM PHARMACEUTICALS, INC.-ALN-2024-002718

PATIENT

DRUGS (14)
  1. AMVUTTRA [Suspect]
     Active Substance: VUTRISIRAN
     Indication: Hereditary neuropathic amyloidosis
     Dosage: 25MG/0.5ML, Q3M
     Route: 058
     Dates: start: 20240403, end: 20240403
  2. ELIQUIS [Concomitant]
     Active Substance: APIXABAN
     Indication: Product used for unknown indication
     Dosage: 2.5 MILLIGRAM, BID (1-0-1)
     Route: 065
  3. FUROSEMIDE [Concomitant]
     Active Substance: FUROSEMIDE
     Indication: Product used for unknown indication
     Dosage: 500 MILLIGRAM, (?-0-0)
     Route: 065
  4. LASIX [Concomitant]
     Active Substance: FUROSEMIDE
     Indication: Product used for unknown indication
     Dosage: 80 MILLIGRAM, QD (0-1-0)
     Route: 065
  5. SPIRONOLACTONE [Concomitant]
     Active Substance: SPIRONOLACTONE
     Indication: Product used for unknown indication
     Dosage: 2 DOSAGE FORM, QD (2-0-0)
     Route: 065
  6. SERTRALINE HYDROCHLORIDE [Concomitant]
     Active Substance: SERTRALINE HYDROCHLORIDE
     Indication: Product used for unknown indication
     Dosage: 100 MILLIGRAM, QD (1-0-0)
     Route: 065
  7. SERTRALINE HYDROCHLORIDE [Concomitant]
     Active Substance: SERTRALINE HYDROCHLORIDE
     Dosage: 50 MILLIGRAM, QD (1-0-0)
     Route: 065
  8. PREGABALIN ACC [Concomitant]
     Indication: Product used for unknown indication
     Dosage: 25 MILLIGRAM, BID, HKPS (2-0-2)
     Route: 065
  9. Novalgin [Concomitant]
     Indication: Product used for unknown indication
     Dosage: 2 DOSAGE FORM, TID (2-2-2)
     Route: 065
  10. NALOXEGOL OXALATE [Concomitant]
     Active Substance: NALOXEGOL OXALATE
     Indication: Product used for unknown indication
     Dosage: 25 MILLIGRAM, QD, (1-0-0)
     Route: 065
  11. Astec [Concomitant]
     Indication: Product used for unknown indication
     Dosage: UNK, ? EVERY 3  DAYS
     Route: 062
  12. LAXOGOL [Concomitant]
     Indication: Product used for unknown indication
     Dosage: UNK, QD (1-0-0)
     Route: 065
  13. BUPRENORPHINE HYDROCHLORIDE [Concomitant]
     Active Substance: BUPRENORPHINE HYDROCHLORIDE
     Indication: Product used for unknown indication
     Dosage: 0.2 MILLIGRAM, BID
     Route: 065
  14. MICROKALEORID [Concomitant]
     Indication: Product used for unknown indication
     Dosage: 2 DOSAGE FORM, TID (2-2-2)
     Route: 065

REACTIONS (1)
  - Cardiac failure [Recovering/Resolving]

NARRATIVE: CASE EVENT DATE: 20240401
